FAERS Safety Report 18604935 (Version 1)
Quarter: 2020Q4

REPORT INFORMATION
  Report Type: Spontaneous
  Country: JP (occurrence: JP)
  Receive Date: 20201211
  Receipt Date: 20201211
  Transmission Date: 20210114
  Serious: Yes (Death)
  Sender: FDA-Public Use
  Company Number: JP-NOVOPROD-772476

PATIENT
  Age: 80 Year
  Sex: Male
  Weight: 40 kg

DRUGS (2)
  1. NOVOSEVEN [Suspect]
     Active Substance: COAGULATION FACTOR VIIA RECOMBINANT HUMAN
     Indication: ACQUIRED HAEMOPHILIA
     Dosage: 3.30MG
     Route: 042
     Dates: start: 202006, end: 202011
  2. BYCLOT [Concomitant]
     Active Substance: COAGULATION FACTOR VII HUMAN\COAGULATION FACTOR X HUMAN
     Indication: ACQUIRED HAEMOPHILIA
     Dosage: UNK
     Route: 042
     Dates: start: 202008, end: 202011

REACTIONS (1)
  - Death [Fatal]

NARRATIVE: CASE EVENT DATE: 202011
